FAERS Safety Report 4752788-8 (Version None)
Quarter: 2005Q3

REPORT INFORMATION
  Report Type: 
  Country: None (occurrence: None)
  Receive Date: 20050823
  Receipt Date: 20050812
  Transmission Date: 20060218
  Serious: Yes (Death, Congenital Anomaly)
  Sender: FDA-Public Use
  Company Number: 2005114502

PATIENT

DRUGS (7)
  1. CETIRIZINE HCL [Suspect]
     Indication: ILL-DEFINED DISORDER
     Dosage: PLACENTAL
     Route: 064
     Dates: start: 20040101, end: 20040101
  2. PREDNISONE TAB [Suspect]
     Indication: ILL-DEFINED DISORDER
     Dosage: PLACENTAL
     Route: 064
     Dates: start: 20040101, end: 20040101
  3. ACETYLCYSTEINE [Suspect]
     Indication: ILL-DEFINED DISORDER
     Dosage: PLACENTAL
     Route: 064
     Dates: start: 20040101, end: 20040101
  4. ALBUTEROL SULFATE HFA [Suspect]
     Indication: ILL-DEFINED DISORDER
     Dosage: PLACENTAL
     Route: 064
     Dates: start: 20040101, end: 20040101
  5. PNEUMOREL (FENSPIRIDE HYDROCHLORIDE) [Suspect]
     Indication: ILL-DEFINED DISORDER
     Dosage: PLACENTAL
     Route: 064
     Dates: start: 20040101, end: 20040101
  6. CEFPODOXIME PROXETIL [Suspect]
     Indication: ILL-DEFINED DISORDER
     Dosage: PLACENTAL
     Route: 064
     Dates: start: 20040101, end: 20040101
  7. MONTELUKAST (MONTELUKAST) [Concomitant]

REACTIONS (4)
  - ABORTION INDUCED [None]
  - ARNOLD-CHIARI MALFORMATION [None]
  - DRUG EXPOSURE DURING PREGNANCY [None]
  - SPINA BIFIDA [None]
